FAERS Safety Report 21451682 (Version 2)
Quarter: 2023Q1

REPORT INFORMATION
  Report Type: Spontaneous
  Country: US (occurrence: US)
  Receive Date: 20221013
  Receipt Date: 20230111
  Transmission Date: 20230418
  Serious: No
  Sender: FDA-Public Use
  Company Number: US-BRISTOL-MYERS SQUIBB COMPANY-2022-120179

PATIENT
  Age: 63 Year
  Sex: Female

DRUGS (2)
  1. YERVOY [Suspect]
     Active Substance: IPILIMUMAB
     Indication: Gallbladder cancer
     Route: 042
     Dates: start: 20220608
  2. YERVOY [Suspect]
     Active Substance: IPILIMUMAB
     Route: 042

REACTIONS (2)
  - Weight decreased [Unknown]
  - Intentional product use issue [Unknown]
